FAERS Safety Report 11321336 (Version 1)
Quarter: 2015Q3

REPORT INFORMATION
  Report Type: Spontaneous
  Country: CA (occurrence: CA)
  Receive Date: 20150729
  Receipt Date: 20150729
  Transmission Date: 20151125
  Serious: Yes (Other)
  Sender: FDA-Public Use
  Company Number: CA-GLAXOSMITHKLINE-CA2015GSK107185

PATIENT
  Age: 60 Year
  Sex: Female

DRUGS (3)
  1. ASPIRIN. [Suspect]
     Active Substance: ASPIRIN
     Indication: INFLUENZA
     Dosage: UNK
     Route: 065
  2. ADVAIR DISKUS [Suspect]
     Active Substance: FLUTICASONE PROPIONATE\SALMETEROL XINAFOATE
     Indication: CHRONIC OBSTRUCTIVE PULMONARY DISEASE
     Dosage: 1 PUFF(S), BID
     Route: 065
     Dates: start: 2008
  3. SOTALOL. [Concomitant]
     Active Substance: SOTALOL
     Indication: ATRIAL FIBRILLATION
     Dosage: 80 MG, UNK
     Route: 065

REACTIONS (9)
  - Pulmonary mass [Recovering/Resolving]
  - Epistaxis [Unknown]
  - Influenza [Unknown]
  - Arrhythmia [Unknown]
  - Productive cough [Unknown]
  - Haematuria [Unknown]
  - Dyspnoea [Unknown]
  - Nasopharyngitis [Unknown]
  - Lung infection [Unknown]

NARRATIVE: CASE EVENT DATE: 201408
